FAERS Safety Report 7493526-8 (Version None)
Quarter: 2011Q2

REPORT INFORMATION
  Report Type: 
  Country: None (occurrence: None)
  Receive Date: 20110520
  Receipt Date: 20110515
  Transmission Date: 20111010
  Serious: Yes (Other)
  Sender: FDA-Public Use
  Company Number: CN-PFIZER INC-2011103787

PATIENT

DRUGS (1)
  1. AROMASIN [Suspect]
     Dosage: UNK
     Route: 048

REACTIONS (1)
  - GAMMA-GLUTAMYLTRANSFERASE INCREASED [None]
